FAERS Safety Report 9157413 (Version 1)
Quarter: 2013Q1

REPORT INFORMATION
  Report Type: Spontaneous
  Country: US (occurrence: None)
  Receive Date: 20130212
  Receipt Date: 20130212
  Transmission Date: 20140127
  Serious: Yes (Disabling, Other)
  Sender: FDA-Public Use
  Company Number: AUR-APL-2013-01129

PATIENT
  Age: 32 Year
  Sex: Male

DRUGS (19)
  1. FLUCONAZOLE [Suspect]
     Indication: CANDIDA INFECTION
     Dosage: (200 MG, 2 IN 1 D), ORAL
     Route: 048
     Dates: start: 20120601, end: 20121222
  2. FLUCONAZOLE [Suspect]
     Indication: CYSTIC FIBROSIS
     Dosage: (200 MG, 2 IN 1 D), ORAL
     Route: 048
     Dates: start: 20120601, end: 20121222
  3. FLUCONAZOLE [Suspect]
     Indication: IMMUNOSUPPRESSION
     Dosage: (200 MG, 2 IN 1 D), ORAL
     Route: 048
     Dates: start: 20120601, end: 20121222
  4. AZITHROMYCIN (AZITROMYCIN) [Concomitant]
  5. CALCICHEW D3 (LEKOVIT CA) [Concomitant]
  6. CO-TRIMOXAZOLE (CO-TRIMOXAZOLE) [Concomitant]
  7. CYCLOSPORIN (CICLOSPORIN) [Concomitant]
  8. FOSFOMYCIN (FOSFOMYCIN) [Concomitant]
  9. MEROPENEM (MEROPENEM) [Concomitant]
  10. MULTIVITAMIN (MULTIVITAMINS) [Concomitant]
  11. MYCOPHENOLATE MOFETIL (MYCOPHENOLATE MOFETIL) [Concomitant]
  12. OMEPRAZOLE (OMEPRAZOLE) [Concomitant]
  13. PREDNISOLONE (PREDNISOLONE) [Concomitant]
  14. RISEDRONATE (RISEDRONATE SODIUM) [Concomitant]
  15. SIROLIMUS (SIROLIMUS) [Concomitant]
  16. SYMBICORT (BUDESONIDE W/FORMOTEROL FUMARATE) [Concomitant]
  17. TACROLIMUS (TACROLIMUS) [Concomitant]
  18. TOBRAMYCIN (TOBRAMYCIN) [Concomitant]
  19. VITAMIN E SUBSTANCES (TOCOPHEROL) [Concomitant]

REACTIONS (2)
  - Bruxism [None]
  - Stereotypy [None]
